FAERS Safety Report 10435326 (Version 1)
Quarter: 2014Q3

REPORT INFORMATION
  Report Type: Spontaneous
  Country: US (occurrence: US)
  Receive Date: 20140908
  Receipt Date: 20140908
  Transmission Date: 20150326
  Serious: Yes (Other)
  Sender: FDA-Public Use
  Company Number: US-JNJCP-30000238260

PATIENT
  Sex: Female
  Weight: 45 kg

DRUGS (2)
  1. CLEAN AND CLEAR ADVANTAGE ACNE CONTROL [Suspect]
     Active Substance: SALICYLIC ACID
     Indication: ACNE
     Dosage: DIME SIZE AMOUNT TWICE A DAY
     Route: 061
     Dates: start: 20140823, end: 20140825
  2. CLEAN AND CLEAR ADVANTAGE ACNE CONTROL 3 IN 1 FOAMING WASH [Suspect]
     Active Substance: SALICYLIC ACID
     Indication: ACNE
     Dosage: DIME SIZE AMOUNT TWICE A DAY
     Route: 061
     Dates: start: 20140823, end: 20140825

REACTIONS (2)
  - Application site erythema [Recovering/Resolving]
  - Application site swelling [Recovering/Resolving]

NARRATIVE: CASE EVENT DATE: 20140825
